FAERS Safety Report 6535177-5 (Version None)
Quarter: 2010Q1

REPORT INFORMATION
  Report Type: 
  Country: None (occurrence: None)
  Receive Date: 20100111
  Receipt Date: 20100111
  Transmission Date: 20100710
  Serious: Yes (Life-Threatening, Hospitalization, Disabling)
  Sender: FDA-Public Use
  Company Number: None

PATIENT
  Age: 67 Year
  Sex: Female
  Weight: 70.3075 kg

DRUGS (1)
  1. BACTRIM [Suspect]
     Indication: ESCHERICHIA URINARY TRACT INFECTION
     Dosage: QTY 14 ONE TWICE DAILY 7 DAYS
     Dates: start: 20091203, end: 20091210

REACTIONS (10)
  - BRAIN OEDEMA [None]
  - CHILLS [None]
  - DECREASED APPETITE [None]
  - DELIRIUM [None]
  - DIARRHOEA [None]
  - DIZZINESS [None]
  - PYREXIA [None]
  - TREMOR [None]
  - VOMITING [None]
  - WEIGHT DECREASED [None]
